FAERS Safety Report 7668961-5 (Version None)
Quarter: 2011Q3

REPORT INFORMATION
  Report Type: 
  Country: None (occurrence: None)
  Receive Date: 20110808
  Receipt Date: 20110307
  Transmission Date: 20111222
  Serious: Yes (Death)
  Sender: FDA-Public Use
  Company Number: JP-GLAXOSMITHKLINE-B0705359A

PATIENT
  Sex: Male
  Weight: 56 kg

DRUGS (10)
  1. LOXONIN [Concomitant]
     Route: 048
     Dates: end: 20070817
  2. METHOTREXATE [Concomitant]
     Indication: IMMUNOSUPPRESSION
     Dosage: 15MG PER DAY
     Route: 065
     Dates: start: 20070622, end: 20070627
  3. ITRACONAZOLE [Concomitant]
     Dosage: 200MG PER DAY
     Route: 048
     Dates: end: 20070803
  4. FLUDARA [Concomitant]
     Indication: CORD BLOOD TRANSPLANT THERAPY
     Dosage: 45MG PER DAY
     Route: 042
     Dates: start: 20070614, end: 20070617
  5. ALKERAN [Suspect]
     Indication: CORD BLOOD TRANSPLANT THERAPY
     Dosage: 64.26MGM2 PER DAY
     Route: 042
     Dates: start: 20070618, end: 20070619
  6. SULFAMETHOXAZOLE [Concomitant]
     Dosage: 5IUAX PER DAY
     Route: 048
     Dates: end: 20070723
  7. CYCLOSPORINE [Suspect]
     Indication: IMMUNOSUPPRESSION
     Dosage: 250MG PER DAY
     Route: 065
     Dates: start: 20070620, end: 20070725
  8. GRAN [Concomitant]
     Dates: start: 20070622, end: 20070725
  9. LANSOPRAZOLE [Concomitant]
     Dosage: 15MG PER DAY
     Route: 048
     Dates: end: 20070807
  10. GANCICLOVIR SODIUM [Concomitant]
     Dosage: 500MG PER DAY
     Route: 042
     Dates: end: 20070619

REACTIONS (2)
  - CEREBRAL ASPERGILLOSIS [None]
  - CEREBRAL HAEMORRHAGE [None]
